FAERS Safety Report 20174480 (Version 1)
Quarter: 2021Q4

REPORT INFORMATION
  Report Type: Spontaneous
  Country: US (occurrence: US)
  Receive Date: 20211213
  Receipt Date: 20211213
  Transmission Date: 20220303
  Serious: No
  Sender: FDA-Public Use
  Company Number: US-ALKEM LABORATORIES LIMITED-US-ALKEM-2021-05091

PATIENT
  Sex: Female

DRUGS (1)
  1. ISONIAZID [Suspect]
     Active Substance: ISONIAZID
     Indication: Product used for unknown indication
     Dosage: 900 MILLIGRAM, ONCE WEEKLY
     Route: 065

REACTIONS (2)
  - Exposure during pregnancy [Unknown]
  - Muscle spasms [Recovered/Resolved]
